FAERS Safety Report 7592289-5 (Version None)
Quarter: 2011Q2

REPORT INFORMATION
  Report Type: 
  Country: None (occurrence: None)
  Receive Date: 20110628
  Receipt Date: 20110623
  Transmission Date: 20111010
  Serious: Yes (Hospitalization, Other)
  Sender: FDA-Public Use
  Company Number: 2010SP031284

PATIENT
  Age: 32 Year
  Sex: Female
  Weight: 79.3795 kg

DRUGS (2)
  1. LUPRON [Concomitant]
  2. NUVARING [Suspect]
     Indication: CONTRACEPTION
     Dosage: ;VAG
     Route: 067
     Dates: start: 20080528, end: 20080601

REACTIONS (13)
  - PULMONARY INFARCTION [None]
  - RAYNAUD'S PHENOMENON [None]
  - MEDICAL DEVICE COMPLICATION [None]
  - ANTINUCLEAR ANTIBODY POSITIVE [None]
  - ABDOMINAL PAIN [None]
  - POST PROCEDURAL CONSTIPATION [None]
  - PULMONARY EMBOLISM [None]
  - HEADACHE [None]
  - EXERCISE TOLERANCE DECREASED [None]
  - COMPLEX REGIONAL PAIN SYNDROME [None]
  - NEUROLOGICAL SYMPTOM [None]
  - NEUROPATHY PERIPHERAL [None]
  - RASH [None]
